FAERS Safety Report 5175343-7 (Version None)
Quarter: 2006Q4

REPORT INFORMATION
  Report Type: 
  Country: None (occurrence: None)
  Receive Date: 20061211
  Receipt Date: 20061211
  Transmission Date: 20070319
  Serious: Yes (Life-Threatening, Disabling)
  Sender: FDA-Public Use
  Company Number: None

PATIENT

DRUGS (1)
  1. DILTIAZEM [Suspect]
     Indication: HYPERTENSION
     Dosage: 180MG DAILY PO
     Route: 048
     Dates: start: 19980110, end: 20061210

REACTIONS (2)
  - MUSCULOSKELETAL DISORDER [None]
  - PHARMACEUTICAL PRODUCT COMPLAINT [None]
